FAERS Safety Report 6679406-6 (Version None)
Quarter: 2010Q2

REPORT INFORMATION
  Report Type: 
  Country: None (occurrence: None)
  Receive Date: 20100413
  Receipt Date: 20100406
  Transmission Date: 20101027
  Serious: Yes (Other)
  Sender: FDA-Public Use
  Company Number: CZ-ROCHE-695655

PATIENT
  Sex: Female

DRUGS (4)
  1. TRASTUZUMAB [Suspect]
     Indication: DRUG USE FOR UNKNOWN INDICATION
     Route: 065
     Dates: start: 20100226, end: 20100226
  2. DEXONA [Concomitant]
  3. RANITAL [Concomitant]
     Dosage: FREQUENCY: 1 AMP.
  4. DITHIADEN [Concomitant]
     Dosage: FREQUENCY: 1 AMP.

REACTIONS (4)
  - BLOOD PRESSURE INCREASED [None]
  - CAPILLARY LEAK SYNDROME [None]
  - CHILLS [None]
  - CYANOSIS [None]
